FAERS Safety Report 6475846-9 (Version None)
Quarter: 2009Q4

REPORT INFORMATION
  Report Type: 
  Country: None (occurrence: None)
  Receive Date: 20091204
  Receipt Date: 20091123
  Transmission Date: 20100525
  Serious: Yes (Hospitalization)
  Sender: FDA-Public Use
  Company Number: CA-CELGENEUS-028-21880-09111977

PATIENT
  Sex: Female

DRUGS (1)
  1. REVLIMID [Suspect]
     Indication: MULTIPLE MYELOMA
     Route: 048
     Dates: start: 20091106

REACTIONS (4)
  - CHEST PAIN [None]
  - HYPERCALCAEMIA [None]
  - HYPOKALAEMIA [None]
  - THROMBOCYTOPENIA [None]
